FAERS Safety Report 22341022 (Version 1)
Quarter: 2023Q2

REPORT INFORMATION
  Report Type: Report from Study
  Country: GR (occurrence: GR)
  Receive Date: 20230518
  Receipt Date: 20230518
  Transmission Date: 20230721
  Serious: Yes (Other)
  Sender: FDA-Public Use
  Company Number: GR-KARYOPHARM-2023KPT001287

PATIENT
  Age: 69 Year
  Sex: Female
  Weight: 71 kg

DRUGS (13)
  1. SELINEXOR [Suspect]
     Active Substance: SELINEXOR
     Indication: Plasma cell myeloma
     Dosage: 100 MG, WEEKLY
     Route: 048
     Dates: start: 20230425
  2. SULFAMETHOXAZOLE\TRIMETHOPRIM [Concomitant]
     Active Substance: SULFAMETHOXAZOLE\TRIMETHOPRIM
     Indication: Infection prophylaxis
     Dosage: 3 X WEEK (3 IN 1 WK)
     Route: 048
     Dates: start: 2018
  3. STABILANOL [Concomitant]
     Indication: Antifungal prophylaxis
     Dosage: 1 X DAY (1 IN 1 D)
     Route: 048
     Dates: start: 2020
  4. ALLOPURINOL [Concomitant]
     Active Substance: ALLOPURINOL
     Indication: Blood uric acid
     Dosage: 1 X NIGHT (1 IN 1 D)
     Route: 048
     Dates: start: 2020
  5. ZOVIRAX [Concomitant]
     Active Substance: ACYCLOVIR
     Indication: Antiviral prophylaxis
     Dosage: 0.5 X NIGHT (1 IN 1 D)
     Route: 048
     Dates: start: 2020
  6. LOSEC [Concomitant]
     Active Substance: OMEPRAZOLE
     Indication: Gastric pH decreased
     Dosage: 1 X DAY (1 IN 1 D)
     Route: 048
     Dates: start: 2020
  7. LEVOTHYROXINE [Concomitant]
     Active Substance: LEVOTHYROXINE
     Indication: Thyroid disorder
     Dosage: 1 X DAY (1 IN 1 D)
     Route: 048
     Dates: start: 2020
  8. ASPIRIN [Concomitant]
     Active Substance: ASPIRIN
     Indication: Anticoagulant therapy
     Dosage: 1 X DAY (1 IN 1 D)
     Route: 048
     Dates: start: 2020
  9. VITAMIN B12 [Concomitant]
     Active Substance: CYANOCOBALAMIN
     Indication: Vitamin B12 deficiency
     Dosage: 1 X DAY (1 IN 1 D)
     Route: 048
     Dates: start: 202303
  10. ROSUVASTATIN [Concomitant]
     Active Substance: ROSUVASTATIN
     Indication: Lipids increased
     Dosage: 1 X NIGHT (1 IN 1 D)
     Route: 048
     Dates: start: 2022
  11. CARVEDILOL [Concomitant]
     Active Substance: CARVEDILOL
     Indication: Peripheral vascular disorder
     Dosage: 0.5 X DAY (1 IN 1 D)
     Dates: start: 2018
  12. NORVASC [Concomitant]
     Active Substance: AMLODIPINE BESYLATE
     Indication: Blood pressure increased
     Dosage: 1 X DAY (1 IN 1 D)
     Dates: start: 2021
  13. DEXAMETHASONE ACETATE [Concomitant]
     Active Substance: DEXAMETHASONE ACETATE
     Indication: Blood pressure increased
     Dosage: 0.5 WHEN PRIOR TO THERAPY WITH XPOVIO AND 0.5 THE FOLLOWING DAY OF TREATMENT WITH XPOVIO

REACTIONS (6)
  - White blood cell count decreased [Not Recovered/Not Resolved]
  - Haematocrit decreased [Not Recovered/Not Resolved]
  - Fatigue [Not Recovered/Not Resolved]
  - Decreased appetite [Not Recovered/Not Resolved]
  - Gait disturbance [Not Recovered/Not Resolved]
  - Dyspnoea [Not Recovered/Not Resolved]

NARRATIVE: CASE EVENT DATE: 20230425
